FAERS Safety Report 7317821 (Version 4)
Quarter: 2014Q4

REPORT INFORMATION
  Report Type: Report from Study
  Country: DE (occurrence: DE)
  Receive Date: 20100312
  Receipt Date: 20141003
  Transmission Date: 20150529
  Serious: Yes (Hospitalization, Other)
  Sender: FDA-Public Use
  Company Number: DE-PFIZER INC-2010026367

PATIENT
  Age: 69 Year
  Sex: Male
  Weight: 74 kg

DRUGS (6)
  1. PEGVISOMANT [Suspect]
     Active Substance: PEGVISOMANT
     Dosage: 10 MG, 7 INJECTIONS/W
     Route: 058
     Dates: start: 20100908
  2. TESTOGEL [Concomitant]
     Active Substance: TESTOSTERONE
     Dosage: UNK
  3. RAMIPRIL. [Concomitant]
     Active Substance: RAMIPRIL
     Dosage: UNK
  4. SIMVASTATIN. [Concomitant]
     Active Substance: SIMVASTATIN
     Dosage: UNK
  5. PEGVISOMANT [Suspect]
     Active Substance: PEGVISOMANT
     Indication: ACROMEGALY
     Dosage: 20 MG, 1X/DAY
     Route: 058
     Dates: start: 20071206, end: 20100601
  6. L-THYROXIN [Concomitant]
     Active Substance: LEVOTHYROXINE SODIUM
     Dosage: UNK

REACTIONS (2)
  - Pituitary tumour benign [Recovered/Resolved]
  - Disease progression [Recovered/Resolved]

NARRATIVE: CASE EVENT DATE: 20091124
